FAERS Safety Report 9731828 (Version 2)
Quarter: 2014Q1

REPORT INFORMATION
  Report Type: Report from Study
  Country: JP (occurrence: JP)
  Receive Date: 20131204
  Receipt Date: 20140310
  Transmission Date: 20141002
  Serious: No
  Sender: FDA-Public Use
  Company Number: JP-JNJFOC-20131201557

PATIENT
  Age: 48 Year
  Sex: Male
  Weight: 70 kg

DRUGS (15)
  1. STELARA [Suspect]
     Indication: PSORIASIS
     Route: 058
     Dates: start: 20121120, end: 20121120
  2. STELARA [Suspect]
     Indication: PSORIASIS
     Route: 058
     Dates: start: 20120903, end: 20120903
  3. STELARA [Suspect]
     Indication: PSORIASIS
     Route: 058
     Dates: start: 20120611, end: 20120611
  4. STELARA [Suspect]
     Indication: PSORIASIS
     Route: 058
     Dates: start: 20130218, end: 20130218
  5. STELARA [Suspect]
     Indication: PSORIASIS
     Route: 058
     Dates: start: 20120106, end: 20120106
  6. STELARA [Suspect]
     Indication: PSORIASIS
     Route: 058
     Dates: start: 20111209, end: 20111209
  7. STELARA [Suspect]
     Indication: PSORIASIS
     Route: 058
     Dates: start: 20130513, end: 20130513
  8. STELARA [Suspect]
     Indication: PSORIASIS
     Route: 058
     Dates: start: 20130819
  9. ISCOTIN [Suspect]
     Indication: PROPHYLAXIS
     Route: 048
     Dates: start: 20120116, end: 20120924
  10. METHOTREXATE [Concomitant]
     Indication: PSORIASIS
     Route: 048
     Dates: end: 20120105
  11. METHOTREXATE [Concomitant]
     Indication: PSORIASIS
     Route: 048
     Dates: start: 20120106, end: 20120327
  12. FOLIAMIN [Concomitant]
     Indication: PROPHYLAXIS
     Route: 048
     Dates: end: 20120326
  13. ANTEBATE [Concomitant]
     Indication: PSORIASIS
     Dosage: 1-2 TIMES PER DAY
     Route: 061
  14. DOVONEX [Concomitant]
     Indication: PSORIASIS
     Dosage: 1-2 TIMES PER DAY
     Route: 061
  15. STELARA [Suspect]
     Indication: PSORIASIS
     Route: 058
     Dates: start: 20120327, end: 20120327

REACTIONS (1)
  - Hepatic function abnormal [Recovered/Resolved]
